FAERS Safety Report 21384566 (Version 1)
Quarter: 2022Q3

REPORT INFORMATION
  Report Type: Spontaneous
  Country: US (occurrence: US)
  Receive Date: 20220928
  Receipt Date: 20220928
  Transmission Date: 20221026
  Serious: Yes (Other)
  Sender: FDA-Public Use
  Company Number: US-Hikma Pharmaceuticals USA Inc.-US-H14001-22-02426

PATIENT
  Age: 3 Month
  Sex: Male
  Weight: 6.24 kg

DRUGS (12)
  1. MORPHINE [Suspect]
     Active Substance: MORPHINE
     Indication: Pain
     Route: 042
  2. MORPHINE [Suspect]
     Active Substance: MORPHINE
     Dosage: 0.05 MG/KG, WHICH HE RECEIVED 3 DOSES OF IN THE FIRST 24 POSTOPERATIVE HOURS AND WHICH WERE EFFECTIV
     Route: 042
  3. DEXMEDETOMIDINE [Suspect]
     Active Substance: DEXMEDETOMIDINE
     Indication: Anaesthesia
     Route: 042
  4. DEXMEDETOMIDINE [Suspect]
     Active Substance: DEXMEDETOMIDINE
     Route: 042
  5. DEXMEDETOMIDINE [Suspect]
     Active Substance: DEXMEDETOMIDINE
     Dosage: 0.4 MCG KG-1 H-1
  6. DEXMEDETOMIDINE [Suspect]
     Active Substance: DEXMEDETOMIDINE
     Dosage: 0.7 MCG KG-1 H-1
  7. DEXMEDETOMIDINE [Suspect]
     Active Substance: DEXMEDETOMIDINE
     Dosage: 0.8 MCG KG-1 H-1
  8. ACETAMINOPHEN\HYDROCODONE [Suspect]
     Active Substance: ACETAMINOPHEN\HYDROCODONE
     Indication: Pain
     Dosage: 0.2 MG/KG
     Route: 048
  9. KETAMINE [Suspect]
     Active Substance: KETAMINE
     Indication: Pain
     Route: 042
  10. KETAMINE [Suspect]
     Active Substance: KETAMINE
     Dosage: 10 MCG KG-1 MIN-1
  11. KETAMINE [Suspect]
     Active Substance: KETAMINE
     Dosage: 0.3 MCG KG-1 H-1
  12. KETAMINE [Suspect]
     Active Substance: KETAMINE
     Dosage: PLUS AN ADDITIONAL 10 MG IN DIVIDED DOSES

REACTIONS (3)
  - Hyperaesthesia [Recovering/Resolving]
  - Agitation [Recovering/Resolving]
  - Drug ineffective [Recovered/Resolved]
